FAERS Safety Report 8490964-1 (Version None)
Quarter: 2012Q2

REPORT INFORMATION
  Report Type: 
  Country: None (occurrence: None)
  Receive Date: 20120626
  Receipt Date: 20120620
  Transmission Date: 20120825
  Serious: Yes (Hospitalization)
  Sender: FDA-Public Use
  Company Number: 2012032468

PATIENT
  Age: 49 Year
  Sex: Female
  Weight: 53.5244 kg

DRUGS (17)
  1. HIZENTRA [Suspect]
     Indication: IMMUNODEFICIENCY COMMON VARIABLE
     Dosage: SEE IMAGE
     Route: 058
     Dates: start: 20120619, end: 20120619
  2. HIZENTRA [Suspect]
     Indication: IMMUNODEFICIENCY COMMON VARIABLE
     Dosage: SEE IMAGE
     Route: 058
     Dates: start: 20120504, end: 20120524
  3. PAMELOR [Concomitant]
  4. PROAIR HFA (SALBUTAMOL SULFATE) [Concomitant]
  5. ACIDOPHILUS (LACTOBCILLUS ACIDOPHILUS) [Concomitant]
  6. PRILOSEC [Concomitant]
  7. VITAMIN D [Concomitant]
  8. DEMEROL (PETHIDINE HYDROCHYLORIDE) [Concomitant]
  9. ALBUTEROL [Concomitant]
  10. BENTYL [Concomitant]
  11. MUCINEX ER (GUAIGENESIN) [Concomitant]
  12. DIPHENHYDRAMINE HCL [Concomitant]
  13. ROBAXIN [Concomitant]
  14. LIDOCAINE/PRILOCAINE (EMLA /00675501/) [Concomitant]
  15. EPIPEN [Concomitant]
  16. ATIVAN [Concomitant]
  17. ZIPRASIDONE HYDROCHLORIDE (GEODON) [Concomitant]

REACTIONS (5)
  - INFUSION SITE SWELLING [None]
  - INFUSION SITE ERYTHEMA [None]
  - THROAT IRRITATION [None]
  - PYREXIA [None]
  - SOMNOLENCE [None]
